FAERS Safety Report 6079259-3 (Version None)
Quarter: 2009Q1

REPORT INFORMATION
  Report Type: 
  Country: None (occurrence: None)
  Receive Date: 20090216
  Receipt Date: 20090204
  Transmission Date: 20090719
  Serious: Yes (Other)
  Sender: FDA-Public Use
  Company Number: PHHY2009FI04074

PATIENT
  Sex: Male

DRUGS (10)
  1. EXELON [Suspect]
     Indication: DEMENTIA ALZHEIMER'S TYPE
     Dosage: 9.5 MG/24H
     Route: 062
     Dates: start: 20081201
  2. PAMOL [Concomitant]
     Dosage: UNK
  3. FURESIS [Concomitant]
     Dosage: UNK
  4. OBSIDAN [Concomitant]
     Dosage: UNK
  5. ENOXAPARIN SODIUM [Concomitant]
     Dosage: UNK
  6. TRIMOPAN [Concomitant]
     Dosage: UNK
  7. NORVASC [Concomitant]
     Dosage: UNK
  8. ASPIRIN AND DIPYRIDAMOLE [Concomitant]
     Dosage: UNK
  9. COVERSYL [Concomitant]
     Dosage: UNK
  10. OXYNORM [Concomitant]
     Dosage: 5-10 MG/DAY
     Dates: start: 20090116

REACTIONS (2)
  - ABNORMAL DREAMS [None]
  - HIP SURGERY [None]
